FAERS Safety Report 4662976-7 (Version None)
Quarter: 2005Q2

REPORT INFORMATION
  Report Type: 
  Country: None (occurrence: None)
  Receive Date: 20050511
  Receipt Date: 20050121
  Transmission Date: 20051028
  Serious: Yes (Hospitalization)
  Sender: FDA-Public Use
  Company Number: ZONI002094

PATIENT
  Sex: Male

DRUGS (3)
  1. ZONEGRAN [Suspect]
     Indication: MIGRAINE
     Dosage: 300 MG, 1 IN 1 D, ORAL
     Route: 048
     Dates: start: 20040101, end: 20050119
  2. HYDROCHLOROTHIAZIDE [Suspect]
     Indication: HYPERTENSION
     Dosage: ORAL
     Route: 048
     Dates: end: 20050119
  3. UNSPECIFIED ANTIHYPERTENSIVES [Concomitant]

REACTIONS (1)
  - PANCREATITIS [None]
